FAERS Safety Report 13577038 (Version 5)
Quarter: 2018Q3

REPORT INFORMATION
  Report Type: Spontaneous
  Country: US (occurrence: US)
  Receive Date: 20170524
  Receipt Date: 20180831
  Transmission Date: 20181010
  Serious: Yes (Hospitalization)
  Sender: FDA-Public Use
  Company Number: US-TEVA-765837ACC

PATIENT
  Age: 56 Year
  Sex: Female

DRUGS (23)
  1. ROBAXIN [Concomitant]
     Active Substance: METHOCARBAMOL
  2. TRAMADOL. [Concomitant]
     Active Substance: TRAMADOL
  3. ALPRAZOLAM. [Concomitant]
     Active Substance: ALPRAZOLAM
  4. OMEPRAZOLE. [Concomitant]
     Active Substance: OMEPRAZOLE
  5. COPAXONE [Suspect]
     Active Substance: GLATIRAMER ACETATE
     Indication: MULTIPLE SCLEROSIS
     Dosage: 20 MILLIGRAM DAILY; PFS
     Route: 058
     Dates: start: 20091113
  6. FOLIC ACID. [Concomitant]
     Active Substance: FOLIC ACID
  7. VITAMIN D3 [Concomitant]
     Active Substance: CHOLECALCIFEROL
  8. LORATADINE. [Concomitant]
     Active Substance: LORATADINE
  9. NEURONTIN [Concomitant]
     Active Substance: GABAPENTIN
  10. DICLOFENAC [Concomitant]
     Active Substance: DICLOFENAC
  11. BACLOFEN. [Concomitant]
     Active Substance: BACLOFEN
  12. GABAPENTIN. [Concomitant]
     Active Substance: GABAPENTIN
  13. SIMVASTATIN. [Concomitant]
     Active Substance: SIMVASTATIN
  14. NAPROXEN. [Concomitant]
     Active Substance: NAPROXEN
  15. TRIAMCINOLONE [Concomitant]
     Active Substance: TRIAMCINOLONE
  16. AMITRIPTYLIN [Concomitant]
     Active Substance: AMITRIPTYLINE
  17. PERMETHRIN. [Concomitant]
     Active Substance: PERMETHRIN
  18. LEVOTHYROXIN [Concomitant]
     Active Substance: LEVOTHYROXINE
  19. LOSARTAN. [Concomitant]
     Active Substance: LOSARTAN
  20. SYNTHROID [Concomitant]
     Active Substance: LEVOTHYROXINE SODIUM
  21. TRIAMTERENE AND HYDROCHLOROTHIAZID [Concomitant]
     Active Substance: HYDROCHLOROTHIAZIDE\TRIAMTERENE
  22. DULOXETINE. [Concomitant]
     Active Substance: DULOXETINE
  23. POTASSIUM CHLORIDE MICRO [Concomitant]
     Route: 065

REACTIONS (10)
  - Tremor [Recovered/Resolved]
  - Mass [Unknown]
  - Goitre [Unknown]
  - Anxiety [Not Recovered/Not Resolved]
  - Thyroid hormones increased [Unknown]
  - Vertigo [Not Recovered/Not Resolved]
  - Dizziness [Not Recovered/Not Resolved]
  - Nausea [Recovered/Resolved]
  - Osteoarthritis [Not Recovered/Not Resolved]
  - Dehydration [Unknown]

NARRATIVE: CASE EVENT DATE: 2015
